FAERS Safety Report 12079352 (Version 1)
Quarter: 2016Q1

REPORT INFORMATION
  Report Type: Spontaneous
  Country: US (occurrence: US)
  Receive Date: 20160216
  Receipt Date: 20160216
  Transmission Date: 20160526
  Serious: No
  Sender: FDA-Public Use
  Company Number: US-BIOGEN-2016BI00188079

PATIENT
  Sex: Female

DRUGS (6)
  1. TOLTERIDONE [Concomitant]
  2. MAXALT [Concomitant]
     Active Substance: RIZATRIPTAN BENZOATE
  3. TECFIDERA [Suspect]
     Active Substance: DIMETHYL FUMARATE
     Indication: MULTIPLE SCLEROSIS
     Route: 048
     Dates: start: 20151023
  4. VITAMIN D [Concomitant]
     Active Substance: CHOLECALCIFEROL
  5. IMITREX [Concomitant]
     Active Substance: SUMATRIPTAN SUCCINATE
  6. OMEPRAZOLE. [Concomitant]
     Active Substance: OMEPRAZOLE

REACTIONS (2)
  - Memory impairment [Unknown]
  - Urticaria [Unknown]
